FAERS Safety Report 12993803 (Version 1)
Quarter: 2016Q4

REPORT INFORMATION
  Report Type: Spontaneous
  Country: US (occurrence: US)
  Receive Date: 20161202
  Receipt Date: 20161202
  Transmission Date: 20170207
  Serious: Yes (Other)
  Sender: FDA-Public Use
  Company Number: None

PATIENT
  Age: 32 Year
  Sex: Female

DRUGS (1)
  1. PARAGARD T 380A [Suspect]
     Active Substance: COPPER

REACTIONS (5)
  - Bacterial vaginosis [None]
  - Muscle spasms [None]
  - Fungal infection [None]
  - Menorrhagia [None]
  - Pelvic inflammatory disease [None]

NARRATIVE: CASE EVENT DATE: 20151108
